FAERS Safety Report 5469396-6 (Version None)
Quarter: 2007Q3

REPORT INFORMATION
  Report Type: 
  Country: None (occurrence: None)
  Receive Date: 20070924
  Receipt Date: 20070911
  Transmission Date: 20080115
  Serious: Yes (Other)
  Sender: FDA-Public Use
  Company Number: 109763ISR

PATIENT
  Age: 39 Year
  Sex: Female

DRUGS (1)
  1. DOXYCYCLINE [Suspect]
     Indication: INFECTION
     Dosage: 100 MG
     Route: 064

REACTIONS (3)
  - ABORTION MISSED [None]
  - CERVICAL POLYP [None]
  - DRUG EXPOSURE DURING PREGNANCY [None]
